FAERS Safety Report 13630987 (Version 1)
Quarter: 2017Q2

REPORT INFORMATION
  Report Type: Spontaneous
  Country: US (occurrence: US)
  Receive Date: 20170608
  Receipt Date: 20170608
  Transmission Date: 20170830
  Serious: Yes (Death)
  Sender: FDA-Public Use
  Company Number: US-FRESENIUS KABI-FK201704801

PATIENT
  Age: 57 Year
  Sex: Male

DRUGS (2)
  1. AMIKACIN (MANUFACTURER UNKNOWN) [Suspect]
     Active Substance: AMIKACIN
     Indication: MYCOBACTERIUM ABSCESSUS INFECTION
     Route: 065
  2. ETHAMBUTOL [Suspect]
     Active Substance: ETHAMBUTOL HYDROCHLORIDE
     Indication: MYCOBACTERIUM ABSCESSUS INFECTION

REACTIONS (2)
  - Ototoxicity [Unknown]
  - Neuropathy peripheral [Unknown]
